FAERS Safety Report 5158229-3 (Version None)
Quarter: 2006Q4

REPORT INFORMATION
  Report Type: 
  Country: None (occurrence: None)
  Receive Date: 20061121
  Receipt Date: 20061121
  Transmission Date: 20070319
  Serious: Yes (Life-Threatening, Hospitalization)
  Sender: FDA-Public Use
  Company Number: None

PATIENT
  Age: 81 Year
  Sex: Female

DRUGS (1)
  1. IRON DEXTRAN [Suspect]
     Indication: ANAEMIA
     Dosage: ONCE IV
     Route: 042
     Dates: start: 20060801, end: 20060801

REACTIONS (2)
  - INFUSION SITE REACTION [None]
  - RESPIRATORY DISTRESS [None]
